FAERS Safety Report 5675553-6 (Version None)
Quarter: 2008Q1

REPORT INFORMATION
  Report Type: 
  Country: None (occurrence: None)
  Receive Date: 20080317
  Receipt Date: 20080307
  Transmission Date: 20080703
  Serious: Yes (Other)
  Sender: FDA-Public Use
  Company Number: 2008AP000603

PATIENT
  Age: 43 Year
  Sex: Male

DRUGS (5)
  1. PAROXETINE HCL [Suspect]
     Dosage: PO : 20 MG;PO;QD : PO
     Route: 048
     Dates: start: 19980401, end: 19980508
  2. PAROXETINE HCL [Suspect]
     Dosage: PO : 20 MG;PO;QD : PO
     Route: 048
     Dates: start: 19970701
  3. PAROXETINE HCL [Suspect]
     Dosage: PO : 20 MG;PO;QD : PO
     Route: 048
     Dates: start: 20060522
  4. DIAZEPAM [Concomitant]
  5. PROPRANOLOL [Concomitant]

REACTIONS (27)
  - AGITATION [None]
  - ANXIETY [None]
  - CONFUSIONAL STATE [None]
  - DIARRHOEA [None]
  - DISTURBANCE IN ATTENTION [None]
  - DIZZINESS [None]
  - DYSGEUSIA [None]
  - ERECTILE DYSFUNCTION [None]
  - HYPERHIDROSIS [None]
  - HYPERVENTILATION [None]
  - INCOHERENT [None]
  - INFLUENZA [None]
  - LETHARGY [None]
  - MEMORY IMPAIRMENT [None]
  - MOOD SWINGS [None]
  - NAUSEA [None]
  - NIGHTMARE [None]
  - PANIC REACTION [None]
  - PARAESTHESIA [None]
  - SENSORY DISTURBANCE [None]
  - SLEEP DISORDER [None]
  - SUICIDAL IDEATION [None]
  - SYNCOPE [None]
  - TREMOR [None]
  - VERTIGO [None]
  - VOMITING [None]
  - WITHDRAWAL SYNDROME [None]
